FAERS Safety Report 5225896-5 (Version None)
Quarter: 2007Q1

REPORT INFORMATION
  Report Type: 
  Country: None (occurrence: None)
  Receive Date: 20070130
  Receipt Date: 20070112
  Transmission Date: 20070707
  Serious: Yes (Hospitalization, Other)
  Sender: FDA-Public Use
  Company Number: ACO_0204_2005

PATIENT
  Age: 45 Year
  Sex: Female
  Weight: 57 kg

DRUGS (3)
  1. TERNELIN [Suspect]
     Indication: MULTIPLE SCLEROSIS
     Dosage: 3 MG QDAY PO
     Route: 048
     Dates: start: 19920101
  2. CIPROFLOXACIN [Suspect]
     Indication: PYURIA
     Dosage: 400 MG QDAY PO
     Route: 048
     Dates: start: 20020101
  3. PREDNISOLONE [Concomitant]

REACTIONS (13)
  - BLOOD PRESSURE DECREASED [None]
  - BODY TEMPERATURE DECREASED [None]
  - DISEASE RECURRENCE [None]
  - DRUG INTERACTION [None]
  - DYSPHORIA [None]
  - GAIT DISTURBANCE [None]
  - HEART RATE DECREASED [None]
  - MULTIPLE SCLEROSIS [None]
  - PAIN IN EXTREMITY [None]
  - RESIDUAL URINE VOLUME [None]
  - SOMNOLENCE [None]
  - THERAPEUTIC RESPONSE UNEXPECTED [None]
  - URINE OUTPUT DECREASED [None]
